FAERS Safety Report 5562702-3 (Version None)
Quarter: 2007Q4

REPORT INFORMATION
  Report Type: 
  Country: None (occurrence: None)
  Receive Date: 20071211
  Receipt Date: 20071211
  Transmission Date: 20080405
  Serious: Yes (Life-Threatening, Hospitalization, Other)
  Sender: FDA-Public Use
  Company Number: None

PATIENT
  Age: 45 Year
  Sex: Male
  Weight: 81.6475 kg

DRUGS (3)
  1. IBUPROFEN    800 MG  ----- 3 TIMES A DAY   POTASH [Suspect]
     Indication: BACK PAIN
     Dosage: IBUPROFEN 800 MG  3 TIMES A DAY  BUCCAL
     Route: 002
     Dates: start: 20050928, end: 20051004
  2. ACETAMINOPHEN [Suspect]
     Indication: BACK PAIN
     Dosage: ACETAMINOPHEN  500 MG 4 TIMES A DAY BUCCAL
     Route: 002
     Dates: start: 20051004, end: 20051014
  3. MEDTRONIC ICD SPRINT FIEDLIS 6949 LEADS [Concomitant]

REACTIONS (4)
  - EXTRASYSTOLES [None]
  - PALPITATIONS [None]
  - TACHYCARDIA [None]
  - VENTRICULAR ARRHYTHMIA [None]
